FAERS Safety Report 19836655 (Version 1)
Quarter: 2021Q3

REPORT INFORMATION
  Report Type: Spontaneous
  Country: NO (occurrence: NO)
  Receive Date: 20210914
  Receipt Date: 20210914
  Transmission Date: 20211014
  Serious: Yes (Life-Threatening)
  Sender: FDA-Public Use
  Company Number: NO-ABBVIE-21K-122-4076982-00

PATIENT
  Age: 66 Year
  Sex: Male

DRUGS (2)
  1. HYRIMOZ [Suspect]
     Active Substance: ADALIMUMAB-ADAZ
     Indication: CROHN^S DISEASE
     Route: 058
     Dates: start: 20200407, end: 20201117
  2. HUMIRA [Suspect]
     Active Substance: ADALIMUMAB
     Indication: CROHN^S DISEASE
     Route: 058
     Dates: start: 20191118, end: 202003

REACTIONS (4)
  - Malaise [Recovering/Resolving]
  - Coronary artery occlusion [Recovering/Resolving]
  - Acute myocardial infarction [Recovering/Resolving]
  - Acute coronary syndrome [Unknown]

NARRATIVE: CASE EVENT DATE: 20200916
